FAERS Safety Report 9012722 (Version 2)
Quarter: 2013Q1

REPORT INFORMATION
  Report Type: Spontaneous
  Country: US (occurrence: US)
  Receive Date: 20130114
  Receipt Date: 20130308
  Transmission Date: 20140127
  Serious: Yes (Death)
  Sender: FDA-Public Use
  Company Number: US-B.I. PHARMACEUTICALS,INC./RIDGEFIELD-2013-BI-00411BP

PATIENT
  Age: 6 Decade
  Sex: Male
  Weight: 136.07 kg

DRUGS (8)
  1. PRADAXA [Suspect]
     Indication: CEREBROVASCULAR ACCIDENT PROPHYLAXIS
     Dosage: 300 MG
     Route: 048
     Dates: start: 20121028
  2. PRADAXA [Suspect]
     Indication: ATRIAL FIBRILLATION
  3. ATENOLOL [Concomitant]
     Dosage: 25 MG
  4. CRESTOR [Concomitant]
     Dosage: 20 MG
  5. CARDIZEM [Concomitant]
     Dosage: 240 MG
  6. LASIX [Concomitant]
     Dosage: 40 MG
  7. POTASSIUM [Concomitant]
     Dosage: 20 MEQ
  8. ASPIRIN REGULAR STRENGTH TABLETS [Concomitant]
     Dosage: 325 MG

REACTIONS (1)
  - Sudden cardiac death [Fatal]
